FAERS Safety Report 8885726 (Version 4)
Quarter: 2013Q1

REPORT INFORMATION
  Report Type: Spontaneous
  Country: US (occurrence: US)
  Receive Date: 20121101
  Receipt Date: 20130131
  Transmission Date: 20140127
  Serious: Yes (Other)
  Sender: FDA-Public Use
  Company Number: US-PFIZER INC-2012269427

PATIENT
  Age: 64 Year
  Sex: Female
  Weight: 58.5 kg

DRUGS (4)
  1. LYRICA [Suspect]
     Indication: FIBROMYALGIA
     Dosage: 300 MG, 2X/DAY
     Route: 048
  2. PROTONIX [Suspect]
     Indication: GASTROOESOPHAGEAL REFLUX DISEASE
     Dosage: 40 MG, 2X/DAY
  3. ALPRAZOLAM [Concomitant]
     Indication: ANXIETY
     Dosage: 2 MG,DAILY
  4. OXYCODONE [Concomitant]
     Indication: ABDOMINAL PAIN UPPER
     Dosage: 10MG/325MG UNKNOWN FREQUENCY

REACTIONS (4)
  - Arthritis [Not Recovered/Not Resolved]
  - Movement disorder [Unknown]
  - Musculoskeletal disorder [Unknown]
  - Local swelling [Unknown]
